FAERS Safety Report 22088202 (Version 2)
Quarter: 2023Q1

REPORT INFORMATION
  Report Type: Spontaneous
  Country: IE (occurrence: IE)
  Receive Date: 20230313
  Receipt Date: 20230315
  Transmission Date: 20230417
  Serious: Yes (Other)
  Sender: FDA-Public Use
  Company Number: IE-MYLANLABS-2023M1025321

PATIENT
  Sex: Female

DRUGS (1)
  1. CLOZARIL [Suspect]
     Active Substance: CLOZAPINE
     Indication: Schizophrenia
     Dosage: 525 MILLIGRAM (100 MG MORNING, 100 MG AFTERNOON AND 325 MG MOCTE)
     Route: 048
     Dates: start: 20060801

REACTIONS (1)
  - Schizophrenia [Unknown]
